FAERS Safety Report 5569994-5 (Version None)
Quarter: 2007Q4

REPORT INFORMATION
  Report Type: 
  Country: None (occurrence: None)
  Receive Date: 20071220
  Receipt Date: 20071212
  Transmission Date: 20080405
  Serious: Yes (Hospitalization, Other)
  Sender: FDA-Public Use
  Company Number: US-PFIZER INC-2006123224

PATIENT
  Sex: Female
  Weight: 88.5 kg

DRUGS (1)
  1. BEXTRA [Suspect]
     Indication: PAIN IN EXTREMITY
     Route: 048
     Dates: start: 20020101, end: 20041029

REACTIONS (1)
  - CEREBROVASCULAR ACCIDENT [None]
